FAERS Safety Report 13682436 (Version 1)
Quarter: 2017Q2

REPORT INFORMATION
  Report Type: Spontaneous
  Country: US (occurrence: US)
  Receive Date: 20170622
  Receipt Date: 20170622
  Transmission Date: 20170830
  Serious: No
  Sender: FDA-Public Use
  Company Number: None

PATIENT
  Age: 28 Year
  Sex: Female

DRUGS (1)
  1. COPAXONE [Suspect]
     Active Substance: GLATIRAMER ACETATE
     Indication: MULTIPLE SCLEROSIS
     Dosage: 40MG/ML TIW SUBCUTANEOUSLY
     Route: 058
     Dates: start: 20170608, end: 20170614

REACTIONS (2)
  - Therapy cessation [None]
  - Pregnancy [None]

NARRATIVE: CASE EVENT DATE: 20170614
